FAERS Safety Report 5761822-8 (Version None)
Quarter: 2008Q2

REPORT INFORMATION
  Report Type: 
  Country: None (occurrence: None)
  Receive Date: 20080606
  Receipt Date: 20080527
  Transmission Date: 20081010
  Serious: Yes (Disabling)
  Sender: FDA-Public Use
  Company Number: JP-PFIZER INC-2008045675

PATIENT
  Age: 61 Year
  Sex: Female

DRUGS (7)
  1. VFEND [Suspect]
     Indication: BRONCHOPULMONARY ASPERGILLOSIS
     Route: 048
     Dates: start: 20080122, end: 20080401
  2. CLARITHROMYCIN [Concomitant]
     Route: 048
  3. MUCOSTA [Concomitant]
     Route: 048
  4. GASTER OD [Concomitant]
     Route: 048
  5. CYANOCOBALAMIN [Concomitant]
  6. MUCOSOLVAN [Concomitant]
  7. NABOAL - SLOW RELEASE [Concomitant]
     Route: 048

REACTIONS (2)
  - BLINDNESS UNILATERAL [None]
  - PHOTOPHOBIA [None]
